FAERS Safety Report 14004755 (Version 6)
Quarter: 2021Q3

REPORT INFORMATION
  Report Type: Spontaneous
  Country: US (occurrence: US)
  Receive Date: 20170922
  Receipt Date: 20210907
  Transmission Date: 20211014
  Serious: Yes (Hospitalization, Other)
  Sender: FDA-Public Use
  Company Number: US-PFIZER INC-2017408627

PATIENT
  Age: 59 Year
  Sex: Female

DRUGS (4)
  1. QUETIAPINE. [Concomitant]
     Active Substance: QUETIAPINE
     Dosage: 12.5 MG, NIGHTLY
     Dates: start: 201709
  2. NORVASC [Suspect]
     Active Substance: AMLODIPINE BESYLATE
     Indication: BLOOD PRESSURE ABNORMAL
     Dosage: UNK
     Dates: start: 201708
  3. PROGRAF [Suspect]
     Active Substance: TACROLIMUS
     Indication: LIVER DISORDER
     Dosage: 0.5 MG, 2X/DAY
     Route: 048
     Dates: start: 201009
  4. PROGRAF [Suspect]
     Active Substance: TACROLIMUS
     Dosage: 1 MG, 2X/DAY (2 CAPSULES AT 9 AM AND 2 CAPSULES AT 9 PM)
     Route: 048

REACTIONS (9)
  - Bowel movement irregularity [Unknown]
  - Constipation [Not Recovered/Not Resolved]
  - Flatulence [Unknown]
  - Glomerular filtration rate decreased [Unknown]
  - Gastrointestinal scarring [Unknown]
  - Confusional state [Unknown]
  - Hypopnoea [Unknown]
  - Asthenia [Unknown]
  - Blood pressure increased [Unknown]

NARRATIVE: CASE EVENT DATE: 2017
